FAERS Safety Report 10645072 (Version 1)
Quarter: 2014Q4

REPORT INFORMATION
  Report Type: Spontaneous
  Country: US (occurrence: None)
  Receive Date: 20141209
  Receipt Date: 20141209
  Transmission Date: 20150529
  Serious: Yes (Other)
  Sender: FDA-Public Use
  Company Number: FK201405806

PATIENT
  Age: 61 Year
  Sex: Female

DRUGS (2)
  1. LETROZOLE (MANUFACTURER UNKNOWN) (LETROZOLE) (LETROZOLE) [Suspect]
     Active Substance: LETROZOLE
     Indication: BREAST CANCER STAGE I
  2. AROMATASE INHIBITOR [Concomitant]
     Active Substance: UNSPECIFIED INGREDIENT

REACTIONS (4)
  - Trigger finger [None]
  - Polyneuropathy [None]
  - Spinal osteoarthritis [None]
  - Joint swelling [None]
